FAERS Safety Report 11865494 (Version 1)
Quarter: 2015Q4

REPORT INFORMATION
  Report Type: Spontaneous
  Country: US (occurrence: US)
  Receive Date: 20151223
  Receipt Date: 20151223
  Transmission Date: 20160305
  Serious: Yes (Other)
  Sender: FDA-Public Use
  Company Number: US-SUNOVION-2015SUN001318

PATIENT
  Sex: Female

DRUGS (1)
  1. LATUDA [Suspect]
     Active Substance: LURASIDONE HYDROCHLORIDE
     Route: 048

REACTIONS (7)
  - Weight increased [Unknown]
  - Brain injury [Unknown]
  - Paranoia [Unknown]
  - Flatulence [Unknown]
  - Memory impairment [Unknown]
  - Headache [Unknown]
  - Tongue disorder [Unknown]
